FAERS Safety Report 4698064-3 (Version None)
Quarter: 2005Q2

REPORT INFORMATION
  Report Type: 
  Country: None (occurrence: None)
  Receive Date: 20050621
  Receipt Date: 20050615
  Transmission Date: 20051028
  Serious: Yes (Death)
  Sender: FDA-Public Use
  Company Number: URSO 2005-017

PATIENT
  Age: 65 Year
  Sex: Male

DRUGS (1)
  1. URSODIOL [Suspect]
     Dosage: 600 MG PO
     Route: 048
     Dates: start: 20010820, end: 20050301

REACTIONS (4)
  - ALCOHOL USE [None]
  - ALCOHOLIC LIVER DISEASE [None]
  - HEPATIC FAILURE [None]
  - TREATMENT NONCOMPLIANCE [None]
